FAERS Safety Report 14031401 (Version 2)
Quarter: 2018Q1

REPORT INFORMATION
  Report Type: Spontaneous
  Country: FR (occurrence: FR)
  Receive Date: 20171003
  Receipt Date: 20180105
  Transmission Date: 20180508
  Serious: Yes (Other)
  Sender: FDA-Public Use
  Company Number: FR-MERCK KGAA-2028402

PATIENT
  Age: 72 Year
  Sex: Female

DRUGS (2)
  1. NOVOTHYROX [Suspect]
     Active Substance: LEVOTHYROXINE SODIUM
     Dates: start: 20170328
  2. NOVOTHYROX [Suspect]
     Active Substance: LEVOTHYROXINE SODIUM
     Indication: PRODUCT USED FOR UNKNOWN INDICATION
     Dates: start: 20170328

REACTIONS (21)
  - Influenza like illness [None]
  - Angioedema [Recovering/Resolving]
  - Gait disturbance [None]
  - Tinnitus [Recovering/Resolving]
  - Blood pressure increased [Recovered/Resolved]
  - Headache [Recovering/Resolving]
  - Middle insomnia [Recovering/Resolving]
  - Disturbance in attention [Recovering/Resolving]
  - Vertigo [Recovered/Resolved]
  - Fatigue [Recovering/Resolving]
  - Fall [None]
  - Palpitations [Recovering/Resolving]
  - Dizziness [Recovering/Resolving]
  - Chest pain [None]
  - Gait disturbance [Recovering/Resolving]
  - Dysstasia [None]
  - Weight increased [Recovering/Resolving]
  - Constipation [Recovering/Resolving]
  - Breast cancer [None]
  - Feeling abnormal [Recovering/Resolving]
  - Asthenopia [Recovering/Resolving]

NARRATIVE: CASE EVENT DATE: 2017
